FAERS Safety Report 5421833-9 (Version None)
Quarter: 2007Q3

REPORT INFORMATION
  Report Type: 
  Country: None (occurrence: None)
  Receive Date: 20070820
  Receipt Date: 20070803
  Transmission Date: 20080115
  Serious: Yes (Other)
  Sender: FDA-Public Use
  Company Number: 016839

PATIENT
  Age: 16 Year
  Sex: Male
  Weight: 93 kg

DRUGS (2)
  1. CLARAVIS [Suspect]
     Indication: ACNE CYSTIC
     Dosage: 40 MG, BID, ORAL
     Route: 048
     Dates: start: 20061001, end: 20070416
  2. ACETAMINOPHEN [Suspect]
     Indication: PAIN IN EXTREMITY
     Dosage: ORAL
     Route: 048
     Dates: start: 20070429, end: 20070502

REACTIONS (6)
  - CHOKING [None]
  - CONVULSION [None]
  - EPILEPSY [None]
  - PAIN IN EXTREMITY [None]
  - TREMOR [None]
  - URTICARIA [None]
